FAERS Safety Report 17344557 (Version 1)
Quarter: 2020Q1

REPORT INFORMATION
  Report Type: Spontaneous
  Country: US (occurrence: US)
  Receive Date: 20200129
  Receipt Date: 20200129
  Transmission Date: 20200409
  Serious: No
  Sender: FDA-Public Use
  Company Number: US-ALLERGAN-1941706US

PATIENT
  Age: 58 Year
  Sex: Male

DRUGS (7)
  1. BOTOX [Suspect]
     Active Substance: ONABOTULINUMTOXINA
     Indication: MICTURITION URGENCY
  2. LIPITOR [Concomitant]
     Active Substance: ATORVASTATIN CALCIUM
     Dosage: UNK
  3. ALLUPURINOL [Concomitant]
     Indication: GOUT
     Dosage: UNK
  4. UNKNOWN ALLERGY PRESCRIPTION [Concomitant]
     Indication: HYPERSENSITIVITY
     Dosage: UNK
  5. ANTIHYPERTENSIVES [Concomitant]
     Active Substance: UNSPECIFIED INGREDIENT
     Indication: HYPERTENSION
     Dosage: UNK
  6. BOTOX [Suspect]
     Active Substance: ONABOTULINUMTOXINA
     Indication: POLLAKIURIA
     Dosage: 100 UNITS, SINGLE
     Dates: start: 20190927, end: 20190927
  7. COLRYS [Concomitant]
     Indication: GOUT
     Dosage: UNK

REACTIONS (5)
  - Chills [Not Recovered/Not Resolved]
  - Urinary retention [Not Recovered/Not Resolved]
  - Dry mouth [Not Recovered/Not Resolved]
  - Urinary tract infection [Unknown]
  - Pyrexia [Not Recovered/Not Resolved]

NARRATIVE: CASE EVENT DATE: 2019
